FAERS Safety Report 5195847-0 (Version None)
Quarter: 2006Q4

REPORT INFORMATION
  Report Type: 
  Country: None (occurrence: None)
  Receive Date: 20061227
  Receipt Date: 20061218
  Transmission Date: 20070319
  Serious: Yes (Death)
  Sender: FDA-Public Use
  Company Number: 06H-163-0311542-00

PATIENT
  Sex: Female

DRUGS (1)
  1. PRECEDEX [Suspect]
     Indication: SEDATION
     Dosage: 50  MCG, ONCE, INTRAVENOUS
     Route: 042
     Dates: start: 20060101, end: 20060101

REACTIONS (3)
  - CARDIO-RESPIRATORY ARREST [None]
  - FOAMING AT MOUTH [None]
  - PULMONARY OEDEMA [None]
